FAERS Safety Report 5959174-3 (Version None)
Quarter: 2008Q4

REPORT INFORMATION
  Report Type: 
  Country: None (occurrence: None)
  Receive Date: 20081120
  Receipt Date: 20080505
  Transmission Date: 20090506
  Serious: No
  Sender: FDA-Public Use
  Company Number: A0726189A

PATIENT
  Age: 28 Year
  Sex: Male

DRUGS (1)
  1. BUPROPION HYDROCHLORIDE [Suspect]
     Indication: DEPRESSION
     Dosage: 150MG TWICE PER DAY
     Route: 048
     Dates: start: 20080401

REACTIONS (1)
  - MUSCLE TWITCHING [None]
